FAERS Safety Report 6468147-6 (Version None)
Quarter: 2009Q4

REPORT INFORMATION
  Report Type: 
  Country: None (occurrence: None)
  Receive Date: 20091127
  Receipt Date: 20091117
  Transmission Date: 20100525
  Serious: Yes (Death)
  Sender: FDA-Public Use
  Company Number: CERZ-1001036

PATIENT
  Age: 17 Month
  Sex: Female
  Weight: 7.5 kg

DRUGS (1)
  1. CEREZYME [Suspect]
     Indication: GAUCHER'S DISEASE
     Dosage: 360 IU, INTRAVENOUS
     Route: 042
     Dates: start: 20090507, end: 20091110

REACTIONS (7)
  - ASPIRATION [None]
  - BRADYCARDIA [None]
  - CONVULSION [None]
  - DYSPNOEA [None]
  - LOWER RESPIRATORY TRACT INFECTION [None]
  - MYOCLONUS [None]
  - TREATMENT NONCOMPLIANCE [None]
